FAERS Safety Report 15700872 (Version 1)
Quarter: 2018Q4

REPORT INFORMATION
  Report Type: Spontaneous
  Country: US (occurrence: US)
  Receive Date: 20181207
  Receipt Date: 20181207
  Transmission Date: 20190205
  Serious: No
  Sender: FDA-Public Use
  Company Number: US-JUBILANT CADISTA PHARMACEUTICALS-2018JUB00062

PATIENT
  Sex: Female

DRUGS (1)
  1. METHYLPREDNISOLONE. [Suspect]
     Active Substance: METHYLPREDNISOLONE
     Indication: MUSCLE SPASMS
     Dosage: UNK
     Dates: start: 201802

REACTIONS (1)
  - Oesophageal irritation [Not Recovered/Not Resolved]

NARRATIVE: CASE EVENT DATE: 201802
